FAERS Safety Report 17753505 (Version 2)
Quarter: 2021Q2

REPORT INFORMATION
  Report Type: Spontaneous
  Country: US (occurrence: US)
  Receive Date: 20200506
  Receipt Date: 20210505
  Transmission Date: 20210716
  Serious: No
  Sender: FDA-Public Use
  Company Number: US-ROCHE-2546805

PATIENT
  Sex: Male

DRUGS (6)
  1. JANUMET [Concomitant]
     Active Substance: METFORMIN HYDROCHLORIDE\SITAGLIPTIN PHOSPHATE
  2. ANDROGEL [Concomitant]
     Active Substance: TESTOSTERONE
  3. TRELSTAR [Concomitant]
     Active Substance: TRIPTORELIN PAMOATE
  4. ESBRIET [Suspect]
     Active Substance: PIRFENIDONE
     Indication: PULMONARY FIBROSIS
     Route: 065
  5. LUCENTIS [Concomitant]
     Active Substance: RANIBIZUMAB
  6. JANUVIA [Concomitant]
     Active Substance: SITAGLIPTIN PHOSPHATE

REACTIONS (4)
  - Insomnia [Unknown]
  - Rash [Unknown]
  - Nausea [Unknown]
  - Asthenia [Unknown]
